FAERS Safety Report 9154550 (Version 1)
Quarter: 2013Q1

REPORT INFORMATION
  Report Type: Spontaneous
  Country: US (occurrence: None)
  Receive Date: 20130308
  Receipt Date: 20130308
  Transmission Date: 20140127
  Serious: Yes (Congenital Anomaly)
  Sender: FDA-Public Use
  Company Number: None

PATIENT
  Age: 33 Year
  Sex: Female
  Weight: 71.67 kg

DRUGS (1)
  1. METROLOTION [Suspect]
     Indication: ROSACEA
     Dosage: ALL OVER FACE 1-2X/DAY TOP
     Route: 061
     Dates: start: 20020801, end: 20111201

REACTIONS (1)
  - Exposure during pregnancy [None]
